FAERS Safety Report 14541130 (Version 1)
Quarter: 2018Q1

REPORT INFORMATION
  Report Type: Spontaneous
  Country: FR (occurrence: FR)
  Receive Date: 20180216
  Receipt Date: 20180216
  Transmission Date: 20180509
  Serious: Yes (Other)
  Sender: FDA-Public Use
  Company Number: FR-OTSUKA-DJ20111096

PATIENT

DRUGS (1)
  1. ABILIFY [Suspect]
     Active Substance: ARIPIPRAZOLE
     Indication: SCHIZOPHRENIA
     Route: 065

REACTIONS (3)
  - Embolism arterial [Recovered/Resolved]
  - Monoplegia [Recovered/Resolved]
  - Embolism [Recovered/Resolved]

NARRATIVE: CASE EVENT DATE: 20090720
